FAERS Safety Report 9607538 (Version 1)
Quarter: 2013Q4

REPORT INFORMATION
  Report Type: Spontaneous
  Country: US (occurrence: None)
  Receive Date: 20131007
  Receipt Date: 20131007
  Transmission Date: 20140711
  Serious: Yes (Other)
  Sender: FDA-Public Use
  Company Number: None

PATIENT
  Age: 24 Year
  Sex: Female

DRUGS (1)
  1. CYMBALTA 30-60 MG LILLY [Suspect]
     Indication: DEPRESSION
     Dosage: 1 PILL ONCE DAILY TAKEN BY MOUTH
     Route: 048

REACTIONS (11)
  - Drug withdrawal syndrome [None]
  - Nausea [None]
  - Vomiting [None]
  - Dizziness [None]
  - Tremor [None]
  - Hyperhidrosis [None]
  - Feeling cold [None]
  - Tinnitus [None]
  - Migraine [None]
  - Malaise [None]
  - Drug dependence [None]
